FAERS Safety Report 4664323-3 (Version None)
Quarter: 2005Q2

REPORT INFORMATION
  Report Type: 
  Country: None (occurrence: None)
  Receive Date: 20050516
  Receipt Date: 20050516
  Transmission Date: 20051028
  Serious: Yes (Other)
  Sender: FDA-Public Use
  Company Number: None

PATIENT
  Age: 49 Year
  Sex: Male
  Weight: 64.4 kg

DRUGS (3)
  1. ABILIFY [Suspect]
     Indication: AFFECTIVE DISORDER
     Dosage: 10 MG PO DAILY
     Route: 048
     Dates: start: 20041216, end: 20050127
  2. ABILIFY [Suspect]
     Indication: BIPOLAR DISORDER
     Dosage: 10 MG PO DAILY
     Route: 048
     Dates: start: 20041216, end: 20050127
  3. LISINOPRIL [Concomitant]

REACTIONS (1)
  - SWOLLEN TONGUE [None]
